FAERS Safety Report 25919605 (Version 1)
Quarter: 2025Q4

REPORT INFORMATION
  Report Type: Spontaneous
  Country: US (occurrence: US)
  Receive Date: 20251014
  Receipt Date: 20251014
  Transmission Date: 20260118
  Serious: No
  Sender: Haleon PLC
  Company Number: US-HALEON-2267318

PATIENT
  Age: 42 Year
  Sex: Female

DRUGS (1)
  1. ABREVA [Suspect]
     Active Substance: DOCOSANOL
     Indication: Oral herpes
     Dosage: STARTED USING IT ON MONDAY, APPLIED IT TWICE THAT DAY, TWICE ON TUESDAY, AND ONCE ON WEDNESDAY FI...
     Dates: start: 20251006, end: 20251008

REACTIONS (7)
  - Application site pain [Not Recovered/Not Resolved]
  - Application site laceration [Not Recovered/Not Resolved]
  - Oral herpes [Unknown]
  - Oral mucosal blistering [Not Recovered/Not Resolved]
  - Mouth haemorrhage [Not Recovered/Not Resolved]
  - Condition aggravated [Unknown]
  - Inappropriate schedule of product administration [Unknown]

NARRATIVE: CASE EVENT DATE: 20251006
